FAERS Safety Report 8593450-3 (Version None)
Quarter: 2012Q3

REPORT INFORMATION
  Report Type: 
  Country: None (occurrence: None)
  Receive Date: 20120814
  Receipt Date: 20120806
  Transmission Date: 20120928
  Serious: Yes (Death)
  Sender: FDA-Public Use
  Company Number: GB-ALEXION PHARMACEUTICALS INC.-A201201478

PATIENT
  Sex: Male

DRUGS (2)
  1. BLOOD AND RELATED PRODUCTS [Concomitant]
     Indication: TRANSFUSION
     Dosage: UNK
     Dates: end: 20120804
  2. SOLIRIS [Suspect]
     Indication: COLD TYPE HAEMOLYTIC ANAEMIA
     Dosage: 600 MG, QW
     Route: 042
     Dates: start: 20120713, end: 20120804

REACTIONS (6)
  - CYANOSIS [None]
  - COLD TYPE HAEMOLYTIC ANAEMIA [None]
  - CONDITION AGGRAVATED [None]
  - CONFUSIONAL STATE [None]
  - EATING DISORDER [None]
  - ASTHENIA [None]
